FAERS Safety Report 11258327 (Version 1)
Quarter: 2015Q3

REPORT INFORMATION
  Report Type: Spontaneous
  Country: GB (occurrence: GB)
  Receive Date: 20150710
  Receipt Date: 20150710
  Transmission Date: 20151125
  Serious: Yes (Hospitalization)
  Sender: FDA-Public Use
  Company Number: GB-TEVA-576416ACC

PATIENT
  Age: 17 Year
  Sex: Male
  Weight: 66 kg

DRUGS (15)
  1. HALOPERIDOL. [Suspect]
     Active Substance: HALOPERIDOL
     Indication: SEDATION
     Dosage: 20 MILLIGRAM DAILY;
     Route: 048
     Dates: start: 20150604
  2. KETAMINE [Concomitant]
     Active Substance: KETAMINE
     Indication: ANAESTHESIA
     Route: 048
  3. DEXAMETHASONE. [Concomitant]
     Active Substance: DEXAMETHASONE
     Indication: NAUSEA
     Route: 042
  4. MIDAZOLAM [Concomitant]
     Active Substance: MIDAZOLAM\MIDAZOLAM HYDROCHLORIDE
     Route: 048
  5. OXYGEN. [Concomitant]
     Active Substance: OXYGEN
     Route: 055
  6. DICLOFENAC [Concomitant]
     Active Substance: DICLOFENAC
     Indication: ANAESTHESIA
     Route: 042
  7. GLYCOPYRROLATE. [Concomitant]
     Active Substance: GLYCOPYRROLATE
     Indication: ANAESTHESIA
  8. ONDANSETRON [Concomitant]
     Active Substance: ONDANSETRON
     Indication: ANAESTHESIA
     Route: 042
  9. SEVOFLURANE. [Concomitant]
     Active Substance: SEVOFLURANE
  10. DESMOPRESSIN [Concomitant]
     Active Substance: DESMOPRESSIN
  11. NAPROXEN. [Concomitant]
     Active Substance: NAPROXEN
     Indication: ARTHRITIS
  12. ATRACURIUM [Concomitant]
     Active Substance: ATRACURIUM
     Indication: ANAESTHESIA
     Route: 042
  13. ANAESTHETIC [Concomitant]
     Active Substance: UNSPECIFIED INGREDIENT
     Indication: ANAESTHESIA
     Route: 061
  14. PARACETAMOL [Concomitant]
     Active Substance: ACETAMINOPHEN
     Indication: ANAESTHESIA
     Route: 042
  15. NEOSTIGMINE [Concomitant]
     Active Substance: NEOSTIGMINE
     Indication: ANAESTHESIA

REACTIONS (5)
  - Restlessness [Recovered/Resolved]
  - Tremor [Not Recovered/Not Resolved]
  - Parkinsonism [Recovered/Resolved]
  - Gait disturbance [Recovered/Resolved]
  - Communication disorder [Recovered/Resolved]

NARRATIVE: CASE EVENT DATE: 20150606
